FAERS Safety Report 9476450 (Version 2)
Quarter: 2013Q3

REPORT INFORMATION
  Report Type: Spontaneous
  Country: US (occurrence: US)
  Receive Date: 20130826
  Receipt Date: 20130910
  Transmission Date: 20140515
  Serious: Yes (Other)
  Sender: FDA-Public Use
  Company Number: US-ROCHE-1264163

PATIENT
  Sex: Female
  Weight: 60.84 kg

DRUGS (30)
  1. AVASTIN [Suspect]
     Indication: PRODUCT USED FOR UNKNOWN INDICATION
     Route: 065
  2. HERCEPTIN [Suspect]
     Indication: PRODUCT USED FOR UNKNOWN INDICATION
     Route: 065
     Dates: start: 200704
  3. HERCEPTIN [Suspect]
     Route: 065
     Dates: start: 20110127
  4. HERCEPTIN [Suspect]
     Route: 065
     Dates: start: 20111025
  5. CAPECITABINE [Suspect]
     Indication: PRODUCT USED FOR UNKNOWN INDICATION
     Route: 065
  6. CISPLATIN [Concomitant]
     Route: 065
     Dates: start: 20110127
  7. CISPLATIN [Concomitant]
     Route: 065
     Dates: start: 20111206
  8. TAXOL [Concomitant]
     Route: 065
     Dates: start: 200708
  9. TAMOXIFEN [Concomitant]
  10. ARIMIDEX [Concomitant]
  11. TAXOTERE [Concomitant]
     Route: 065
     Dates: start: 200704
  12. CARBOPLATIN [Concomitant]
     Route: 065
     Dates: start: 200708
  13. NAVELBINE [Concomitant]
  14. TYKERB [Concomitant]
     Route: 065
     Dates: end: 20090908
  15. FASLODEX [Concomitant]
  16. ATIVAN [Concomitant]
  17. AFINITOR [Concomitant]
  18. EXEMESTANE [Concomitant]
  19. IXEMPRA [Concomitant]
  20. KEFLEX [Concomitant]
  21. AREDIA [Concomitant]
     Route: 065
     Dates: end: 20091019
  22. LAPATINIB [Concomitant]
     Route: 065
  23. LAPATINIB [Concomitant]
     Dosage: DAYS 1-21, GIVEN EVERY 21 DAYS
     Route: 065
  24. LASIX [Concomitant]
     Route: 065
  25. MARINOL (UNITED STATES) [Concomitant]
     Route: 065
  26. ONDANSETRON HCL [Concomitant]
     Route: 065
  27. PROCHLORPERAZINE MALEATE [Concomitant]
     Route: 065
  28. GEMZAR [Concomitant]
     Route: 065
     Dates: start: 20110127
  29. GEMZAR [Concomitant]
     Route: 065
     Dates: start: 20111206
  30. HALAVEN [Concomitant]

REACTIONS (4)
  - Metastases to lung [Unknown]
  - Neuropathy peripheral [Unknown]
  - Cellulitis [Unknown]
  - Pain in extremity [Unknown]
